FAERS Safety Report 22861556 (Version 2)
Quarter: 2023Q4

REPORT INFORMATION
  Report Type: Spontaneous
  Country: US (occurrence: US)
  Receive Date: 20230824
  Receipt Date: 20231123
  Transmission Date: 20240109
  Serious: Yes (Death, Other)
  Sender: FDA-Public Use
  Company Number: US-BRISTOL-MYERS SQUIBB COMPANY-2023-119124

PATIENT
  Age: 61 Year
  Sex: Male

DRUGS (2)
  1. OPDIVO [Suspect]
     Active Substance: NIVOLUMAB
     Indication: Oesophageal neoplasm
     Dosage: DOSE : OPDIVO 150 MG, YERVOY 50 MG;     FREQ : OPDIVO 150 MG EVERY 2 WEEKS YERVOY 50 MG EVERY 42 DAY
  2. YERVOY [Suspect]
     Active Substance: IPILIMUMAB
     Indication: Oesophageal neoplasm
     Dosage: DOSE : OPDIVO 150 MG, YERVOY 50 MG; FREQ : OPDIVO 150 MG EVERY 2 WEEKS YERVOY 50 MG EVERY 42 DAYS

REACTIONS (1)
  - Death [Fatal]
